FAERS Safety Report 23272827 (Version 1)
Quarter: 2023Q4

REPORT INFORMATION
  Report Type: Spontaneous
  Country: CN (occurrence: CN)
  Receive Date: 20231207
  Receipt Date: 20231207
  Transmission Date: 20240110
  Serious: Yes (Hospitalization, Other)
  Sender: FDA-Public Use
  Company Number: CN-009507513-2312CHN000869

PATIENT
  Age: 70 Year
  Sex: Female
  Weight: 41 kg

DRUGS (12)
  1. CILASTATIN SODIUM\IMIPENEM [Suspect]
     Active Substance: CILASTATIN SODIUM\IMIPENEM
     Indication: Sepsis
     Dosage: 0.5 GRAM, ONCE
     Route: 041
     Dates: start: 20231114, end: 20231114
  2. CILASTATIN SODIUM\IMIPENEM [Suspect]
     Active Substance: CILASTATIN SODIUM\IMIPENEM
     Dosage: 0.5 GRAM, Q8H
     Route: 041
     Dates: start: 20231114, end: 20231117
  3. ACETAMINOPHEN\CAFFEINE\PROPYPHENAZONE [Suspect]
     Active Substance: ACETAMINOPHEN\CAFFEINE\PROPYPHENAZONE
     Indication: Pyrexia
     Dosage: 1 TABLET, ORAL ST, ONCE (ALSO REPORTED AS ONCE EVERY 11 DAYS (CONFLICT INFORMATION))
     Route: 048
     Dates: start: 20231114, end: 20231114
  4. IBUPROFEN [Suspect]
     Active Substance: IBUPROFEN
     Indication: Pyrexia
     Dosage: 7  ML, ONCE, ORAL ST
     Route: 048
     Dates: start: 20231114, end: 20231114
  5. IBUPROFEN [Suspect]
     Active Substance: IBUPROFEN
     Dosage: 6 ML, ONCE (ALSO REPORTED AS ONCE EVERY 11 DAYS)), ORAL ST
     Route: 048
     Dates: start: 20231114, end: 20231114
  6. SODIUM CHLORIDE [Concomitant]
     Active Substance: SODIUM CHLORIDE
     Indication: Medication dilution
     Dosage: 100 ML, QD, IV DRIP
     Route: 041
     Dates: start: 20231114, end: 20231116
  7. SODIUM CHLORIDE [Concomitant]
     Active Substance: SODIUM CHLORIDE
     Dosage: 250 ML, ONCE, IV DRIP
     Route: 041
     Dates: start: 20231114, end: 20231114
  8. SODIUM CHLORIDE [Concomitant]
     Active Substance: SODIUM CHLORIDE
     Dosage: 100 ML, Q8H, IV DRIP
     Route: 041
     Dates: start: 20231114, end: 20231117
  9. POTASSIUM CHLORIDE [Concomitant]
     Active Substance: POTASSIUM CHLORIDE
     Indication: Mineral supplementation
     Dosage: 10 ML, QD, IV DRIP
     Route: 041
     Dates: start: 20231114, end: 20231117
  10. OMEPRAZOLE SODIUM [Concomitant]
     Active Substance: OMEPRAZOLE SODIUM
     Indication: Gastroenteritis
     Dosage: 40 MG, ONCE, IV DRIP
     Route: 041
     Dates: start: 20231114, end: 20231116
  11. VITAMIN C [Concomitant]
     Active Substance: ASCORBIC ACID
     Indication: Nutritional supplementation
     Dosage: 0.5 G, ONCE, IV DRIP
     Route: 041
     Dates: start: 20231114, end: 20231114
  12. DEXTROSE\SODIUM CHLORIDE [Concomitant]
     Active Substance: DEXTROSE\SODIUM CHLORIDE
     Indication: Medication dilution
     Dosage: 500 ML, ONCE, IV DRIP
     Route: 041
     Dates: start: 20231114, end: 20231117

REACTIONS (3)
  - Drug eruption [Not Recovered/Not Resolved]
  - Dermatitis exfoliative [Not Recovered/Not Resolved]
  - Blood pressure increased [Unknown]

NARRATIVE: CASE EVENT DATE: 20231114
